FAERS Safety Report 8092323-2 (Version None)
Quarter: 2012Q1

REPORT INFORMATION
  Report Type: 
  Country: None (occurrence: None)
  Receive Date: 20120128
  Receipt Date: 20110823
  Transmission Date: 20120608
  Serious: No
  Sender: FDA-Public Use
  Company Number: US-ABBOTT-11P-163-0848850-00

PATIENT
  Age: 48 Year
  Sex: Male

DRUGS (4)
  1. DOXYCYCLINE [Concomitant]
     Indication: PRODUCT USED FOR UNKNOWN INDICATION
  2. LUMIGAN [Concomitant]
     Indication: PRODUCT USED FOR UNKNOWN INDICATION
     Dosage: 1 GTT
  3. HUMIRA [Suspect]
     Indication: PSORIATIC ARTHROPATHY
     Dates: start: 20040101
  4. LASIX [Concomitant]
     Indication: OEDEMA PERIPHERAL

REACTIONS (1)
  - TUBERCULIN TEST POSITIVE [None]
